FAERS Safety Report 9896346 (Version 2)
Quarter: 2014Q1

REPORT INFORMATION
  Report Type: Spontaneous
  Country: US (occurrence: US)
  Receive Date: 20140213
  Receipt Date: 20140213
  Transmission Date: 20141002
  Serious: No
  Sender: FDA-Public Use
  Company Number: US-BRISTOL-MYERS SQUIBB COMPANY-19080332

PATIENT
  Age: 63 Year
  Sex: Female
  Weight: 113.38 kg

DRUGS (2)
  1. ORENCIA [Suspect]
     Indication: RHEUMATOID ARTHRITIS
     Dosage: LAST INJECTION:26JUN2013
     Route: 058
     Dates: start: 20130612
  2. HUMIRA [Concomitant]
     Dosage: LAST DOSE ON 22-MAY-2013

REACTIONS (1)
  - Inappropriate schedule of drug administration [Unknown]
